FAERS Safety Report 5884338-7 (Version None)
Quarter: 2008Q3

REPORT INFORMATION
  Report Type: 
  Country: None (occurrence: None)
  Receive Date: 20080915
  Receipt Date: 20080903
  Transmission Date: 20090109
  Serious: Yes (Hospitalization)
  Sender: FDA-Public Use
  Company Number: US-PFIZER INC-2008074593

PATIENT
  Age: 59 Year
  Sex: Female
  Weight: 78.92 kg

DRUGS (2)
  1. PHENYTOIN [Suspect]
  2. TEMOZOLOMIDE [Suspect]
     Indication: GLIOBLASTOMA MULTIFORME
     Route: 048
     Dates: start: 20080618, end: 20080730

REACTIONS (2)
  - ERYTHEMA MULTIFORME [None]
  - PYREXIA [None]
